FAERS Safety Report 7066265-5 (Version None)
Quarter: 2010Q4

REPORT INFORMATION
  Report Type: 
  Country: None (occurrence: None)
  Receive Date: 20101027
  Receipt Date: 20101019
  Transmission Date: 20110411
  Serious: Yes (Other)
  Sender: FDA-Public Use
  Company Number: LB-ABBOTT-10P-093-0679434-00

PATIENT
  Age: 44 Year
  Sex: Female

DRUGS (4)
  1. DEPAKENE [Suspect]
     Indication: EPILEPSY
     Dosage: 2 GRAMS DAILY
     Route: 048
     Dates: start: 20100601, end: 20101012
  2. DEPAKENE [Suspect]
     Dosage: 1 GRAM DAILY
     Route: 048
     Dates: start: 20101012
  3. KEPPRA [Concomitant]
     Indication: PRODUCT USED FOR UNKNOWN INDICATION
     Dates: start: 20100601
  4. TEGRETOL [Concomitant]
     Indication: PRODUCT USED FOR UNKNOWN INDICATION
     Dates: start: 20100601, end: 20100901

REACTIONS (3)
  - AMMONIA INCREASED [None]
  - FATIGUE [None]
  - LETHARGY [None]
